FAERS Safety Report 24795272 (Version 1)
Quarter: 2024Q4

REPORT INFORMATION
  Report Type: Spontaneous
  Country: IE (occurrence: IE)
  Receive Date: 20241231
  Receipt Date: 20241231
  Transmission Date: 20250115
  Serious: Yes (Other)
  Sender: PFIZER
  Company Number: IE-ROCHE-10000156621

PATIENT
  Sex: Male

DRUGS (7)
  1. CYTARABINE [Suspect]
     Active Substance: CYTARABINE
     Indication: Diffuse large B-cell lymphoma
     Dosage: CYCLE 1,R-CODOX-M (OMITTED DOXO AND MTX)
     Route: 065
     Dates: start: 2022
  2. VINCRISTINE SULFATE [Suspect]
     Active Substance: VINCRISTINE SULFATE
     Indication: Diffuse large B-cell lymphoma
     Dosage: CYCLE 1, R-CODOX-M (OMITTED DOXO AND MTX) AND CYCLE 5 RCVP
     Route: 065
     Dates: start: 2022
  3. RITUXIMAB [Suspect]
     Active Substance: RITUXIMAB
     Indication: Diffuse large B-cell lymphoma
     Dosage: CYCLE 1, R-CODOX-M (OMITTED DOXO AND MTX), CYCLE 5 RCVP, AND RITUXI-POLA
     Route: 065
     Dates: start: 2022
  4. POLATUZUMAB VEDOTIN [Suspect]
     Active Substance: POLATUZUMAB VEDOTIN
     Indication: Diffuse large B-cell lymphoma
     Dosage: RITUXI-POLA
     Route: 065
  5. CYCLOPHOSPHAMIDE [Suspect]
     Active Substance: CYCLOPHOSPHAMIDE
     Indication: Diffuse large B-cell lymphoma
     Dosage: CYCLE 1, R-CODOX-M (OMITTED DOXO AND MTX) AND CYCLE 5 RCVP
     Route: 065
     Dates: start: 2022
  6. PREDNISOLONE [Suspect]
     Active Substance: PREDNISOLONE
     Indication: Diffuse large B-cell lymphoma
     Dosage: CYCLE 1, R-CODOX-M (OMITTED DOXO AND MTX)
     Route: 065
     Dates: start: 2022
  7. PREDNISONE [Suspect]
     Active Substance: PREDNISONE
     Indication: Diffuse large B-cell lymphoma
     Dosage: CYCLE 5 RCVP
     Route: 065
     Dates: start: 2022

REACTIONS (3)
  - Cardiomyopathy [Unknown]
  - Blood lactate dehydrogenase increased [Unknown]
  - Off label use [Unknown]
